FAERS Safety Report 4286555-9 (Version None)
Quarter: 2004Q1

REPORT INFORMATION
  Report Type: 
  Country: None (occurrence: None)
  Receive Date: 20040204
  Receipt Date: 20040127
  Transmission Date: 20041129
  Serious: Yes (Life-Threatening)
  Sender: FDA-Public Use
  Company Number: 200410036BYL

PATIENT
  Age: 74 Year
  Sex: Male

DRUGS (5)
  1. ADALAT [Suspect]
     Indication: BLOOD PRESSURE INCREASED
     Dosage: PRN, ORAL
     Route: 048
     Dates: start: 20040110, end: 20040111
  2. ASPIRIN [Suspect]
     Indication: ANGINA PECTORIS
     Dosage: ORAL
     Route: 048
     Dates: start: 20040109, end: 20040114
  3. ISOSORBIDE MONONITRATE [Suspect]
     Indication: ANGINA PECTORIS
     Dosage: ORAL
     Route: 048
     Dates: start: 20040109, end: 20040114
  4. VEEN D [Concomitant]
  5. SOLITA-T3 INJECTION [Concomitant]

REACTIONS (6)
  - AMNESIA [None]
  - BLOOD PRESSURE SYSTOLIC INCREASED [None]
  - ELECTROCARDIOGRAM ST SEGMENT ELEVATION [None]
  - HYPONATRAEMIA [None]
  - INAPPROPRIATE ANTIDIURETIC HORMONE SECRETION [None]
  - MENTAL STATUS CHANGES [None]
